FAERS Safety Report 11936032 (Version 3)
Quarter: 2016Q2

REPORT INFORMATION
  Report Type: Report from Study
  Country: US (occurrence: US)
  Receive Date: 20160121
  Receipt Date: 20160428
  Transmission Date: 20160815
  Serious: Yes (Other)
  Sender: FDA-Public Use
  Company Number: US-AMGEN-USASL2015119983

PATIENT
  Age: 60 Year
  Sex: Female

DRUGS (4)
  1. KYPROLIS [Suspect]
     Active Substance: CARFILZOMIB
     Dosage: 60 MG, 2 TIMES/WK
     Route: 065
  2. CYTOXAN [Suspect]
     Active Substance: CYCLOPHOSPHAMIDE
     Indication: PRODUCT USED FOR UNKNOWN INDICATION
     Dosage: UNK
     Route: 065
  3. KYPROLIS [Suspect]
     Active Substance: CARFILZOMIB
     Indication: PLASMA CELL MYELOMA
     Dosage: UNK
     Route: 065
     Dates: start: 2015
  4. KYPROLIS [Suspect]
     Active Substance: CARFILZOMIB
     Dosage: 60 MG, UNK
     Route: 065
     Dates: start: 20160224, end: 2016

REACTIONS (8)
  - Vulvovaginal discomfort [Unknown]
  - Platelet count decreased [Recovering/Resolving]
  - Dyspnoea [Not Recovered/Not Resolved]
  - Oxygen saturation decreased [Unknown]
  - Headache [Not Recovered/Not Resolved]
  - Urethritis noninfective [Unknown]
  - Blood oestrogen decreased [Unknown]
  - Back pain [Not Recovered/Not Resolved]

NARRATIVE: CASE EVENT DATE: 20151107
